FAERS Safety Report 20771447 (Version 1)
Quarter: 2022Q2

REPORT INFORMATION
  Report Type: Spontaneous
  Country: CN (occurrence: CN)
  Receive Date: 20220429
  Receipt Date: 20220429
  Transmission Date: 20220720
  Serious: Yes (Hospitalization, Other)
  Sender: FDA-Public Use
  Company Number: CN-GLAXOSMITHKLINE-CN2022APC066960

PATIENT
  Age: 50 Year
  Sex: Male

DRUGS (1)
  1. ADEFOVIR DIPIVOXIL [Suspect]
     Active Substance: ADEFOVIR DIPIVOXIL
     Indication: Hepatitis B
     Dosage: UNK
     Route: 048

REACTIONS (17)
  - Fanconi syndrome [Recovered/Resolved]
  - Osteoporosis [Recovered/Resolved]
  - Pain in extremity [Recovered/Resolved]
  - Pain in extremity [Recovered/Resolved]
  - Pain [Recovered/Resolved]
  - Chest pain [Recovered/Resolved]
  - Poor quality sleep [Recovered/Resolved]
  - Gait disturbance [Recovered/Resolved]
  - Condition aggravated [Recovered/Resolved]
  - Musculoskeletal chest pain [Recovered/Resolved]
  - Musculoskeletal chest pain [Recovered/Resolved]
  - Asthenia [Recovered/Resolved]
  - Bone metabolism disorder [Recovered/Resolved]
  - Pollakiuria [Recovered/Resolved]
  - Electrolyte imbalance [Recovered/Resolved]
  - Plantar fasciitis [Recovered/Resolved]
  - Urine output increased [Recovered/Resolved]
